FAERS Safety Report 20009383 (Version 1)
Quarter: 2021Q4

REPORT INFORMATION
  Report Type: Report from Study
  Country: US (occurrence: US)
  Receive Date: 20211028
  Receipt Date: 20211028
  Transmission Date: 20220303
  Serious: Yes (Hospitalization, Other)
  Sender: FDA-Public Use
  Company Number: US-BAUSCH-BL-2021-035331

PATIENT
  Sex: Female

DRUGS (2)
  1. XENAZINE [Suspect]
     Active Substance: TETRABENAZINE
     Indication: Dystonia
     Route: 065
  2. XENAZINE [Suspect]
     Active Substance: TETRABENAZINE
     Indication: Off label use

REACTIONS (5)
  - Hospitalisation [Not Recovered/Not Resolved]
  - Dystonia [Unknown]
  - Therapy cessation [Unknown]
  - Off label use [Unknown]
  - Therapeutic product effective for unapproved indication [Unknown]
